FAERS Safety Report 9412954 (Version 1)
Quarter: 2013Q2

REPORT INFORMATION
  Report Type: Spontaneous
  Country: DE (occurrence: DE)
  Receive Date: 20130625
  Receipt Date: 20130625
  Transmission Date: 20140414
  Serious: Yes (Hospitalization)
  Sender: FDA-Public Use
  Company Number: 221966

PATIENT
  Sex: Female

DRUGS (1)
  1. DAIVOBET OINTMENT (DAIVOBET) [Suspect]
     Indication: PRODUCT USED FOR UNKNOWN INDICATION
     Dates: end: 20130518

REACTIONS (2)
  - Swelling face [None]
  - Oedema peripheral [None]
